FAERS Safety Report 12863019 (Version 2)
Quarter: 2017Q1

REPORT INFORMATION
  Report Type: Spontaneous
  Country: US (occurrence: US)
  Receive Date: 20161019
  Receipt Date: 20170111
  Transmission Date: 20170428
  Serious: No
  Sender: FDA-Public Use
  Company Number: US-PFIZER INC-2016480028

PATIENT
  Age: 82 Year
  Sex: Female
  Weight: 54 kg

DRUGS (2)
  1. TIKOSYN [Suspect]
     Active Substance: DOFETILIDE
     Indication: SINUS TACHYCARDIA
     Dosage: 125 UG, UNK
     Dates: start: 20161003
  2. TIKOSYN [Suspect]
     Active Substance: DOFETILIDE
     Indication: ARRHYTHMIA

REACTIONS (3)
  - Drug effect incomplete [Unknown]
  - Blood pressure increased [Unknown]
  - Urinary tract infection [Unknown]

NARRATIVE: CASE EVENT DATE: 2016
